FAERS Safety Report 16230366 (Version 2)
Quarter: 2019Q2

REPORT INFORMATION
  Report Type: Report from Study
  Country: US (occurrence: US)
  Receive Date: 20190423
  Receipt Date: 20190507
  Transmission Date: 20190711
  Serious: Yes (Other)
  Sender: FDA-Public Use
  Company Number: PHEH2019US017049

PATIENT
  Sex: Male

DRUGS (1)
  1. ENTRESTO [Suspect]
     Active Substance: SACUBITRIL\VALSARTAN
     Indication: CARDIAC FAILURE
     Dosage: 1 DF (SACUBITRIL 24 MG/ VALSARTAN 26 MG), QD
     Route: 048

REACTIONS (7)
  - Cardiac ventricular disorder [Unknown]
  - Diverticulitis [Unknown]
  - Underdose [Unknown]
  - Gait disturbance [Unknown]
  - Fatigue [Unknown]
  - Intestinal perforation [Unknown]
  - Gastrointestinal infection [Unknown]
